FAERS Safety Report 21295858 (Version 1)
Quarter: 2022Q3

REPORT INFORMATION
  Report Type: Spontaneous
  Country: FR (occurrence: FR)
  Receive Date: 20220906
  Receipt Date: 20220906
  Transmission Date: 20221027
  Serious: Yes (Hospitalization)
  Sender: FDA-Public Use
  Company Number: FR-SUN PHARMACEUTICAL INDUSTRIES LTD-2022RR-353021

PATIENT
  Age: 77 Year
  Sex: Female
  Weight: 117 kg

DRUGS (4)
  1. PREGABALIN [Suspect]
     Active Substance: PREGABALIN
     Indication: Wrong patient
     Dosage: 100 MILLIGRAM, IN TOTAL
     Route: 048
     Dates: start: 20220802, end: 20220802
  2. EUTHYROX [Concomitant]
     Active Substance: LEVOTHYROXINE SODIUM
     Indication: Wrong patient
     Dosage: 125 MICROGRAM, IN TOTAL
     Route: 048
     Dates: start: 20220802, end: 20220802
  3. ELIQUIS [Concomitant]
     Active Substance: APIXABAN
     Indication: Wrong patient
     Dosage: 2.5 MILLIGRAM, IN TOTAL
     Route: 048
     Dates: start: 20220802, end: 20220802
  4. METHYLPREDNISOLONE [Concomitant]
     Active Substance: METHYLPREDNISOLONE
     Indication: Wrong patient
     Dosage: 8 MILLIGRAM, IN TOTAL
     Route: 048
     Dates: start: 20220802, end: 20220802

REACTIONS (6)
  - Hypercapnia [Recovered/Resolved]
  - Altered state of consciousness [Recovered/Resolved]
  - Mydriasis [Recovered/Resolved]
  - Hypotonia [Recovered/Resolved]
  - Hypoxia [Recovered/Resolved]
  - Wrong patient [Recovered/Resolved]

NARRATIVE: CASE EVENT DATE: 20220802
